FAERS Safety Report 6653212-0 (Version None)
Quarter: 2010Q1

REPORT INFORMATION
  Report Type: 
  Country: None (occurrence: None)
  Receive Date: 20100326
  Receipt Date: 20100316
  Transmission Date: 20100710
  Serious: No
  Sender: FDA-Public Use
  Company Number: DE-ELI_LILLY_AND_COMPANY-DE201002003725

PATIENT
  Sex: Female

DRUGS (2)
  1. ZYPREXA [Suspect]
     Indication: BULIMIA NERVOSA
     Dosage: 20 MG, UNK
     Dates: start: 20100128, end: 20100211
  2. LORAZEPAM [Concomitant]
     Dosage: 1 MG, 3/D
     Dates: start: 20100128

REACTIONS (2)
  - LEUKOPENIA [None]
  - OFF LABEL USE [None]
